FAERS Safety Report 5621172-7 (Version None)
Quarter: 2008Q1

REPORT INFORMATION
  Report Type: 
  Country: None (occurrence: None)
  Receive Date: 20080114
  Receipt Date: 20061125
  Transmission Date: 20080703
  Serious: Yes (Life-Threatening, Hospitalization)
  Sender: FDA-Public Use
  Company Number: A03200607351

PATIENT
  Age: 68 Year
  Sex: Male
  Weight: 98.8842 kg

DRUGS (14)
  1. PLAVIX [Suspect]
     Indication: STENT PLACEMENT
     Dosage: 75 MG QD - ORAL
     Route: 048
     Dates: start: 20050101, end: 20050701
  2. PLAVIX [Suspect]
     Indication: STENT PLACEMENT
     Dosage: 75 MG QD - ORAL
     Route: 048
     Dates: start: 20060601
  3. ASPIRIN [Suspect]
     Indication: STENT PLACEMENT
     Dosage: 81 MG BID - ORAL
     Route: 048
     Dates: start: 20050601
  4. DICLOFENAC - TABLET [Suspect]
     Indication: ARTHRITIS
     Dosage: ORAL
     Route: 048
     Dates: end: 20061001
  5. PIOGLITAZONE HCL [Concomitant]
  6. ISOPHANE INSULIN [Concomitant]
  7. GLIPIZIDE [Concomitant]
  8. METFORMIN HCL [Concomitant]
  9. ATENOLOL [Concomitant]
  10. LISINOPRIL [Concomitant]
  11. LOVASTATIN [Concomitant]
  12. DILTIAZEM HYDROCHLORIDE [Concomitant]
  13. LOVASTATIN [Concomitant]
  14. NICOTINIC ACID [Concomitant]

REACTIONS (6)
  - DRUG INTERACTION [None]
  - DYSPEPSIA [None]
  - GASTRIC ULCER HAEMORRHAGE [None]
  - HAEMATEMESIS [None]
  - HAEMORRHAGIC ANAEMIA [None]
  - MELAENA [None]
